FAERS Safety Report 6099598-X (Version None)
Quarter: 2009Q1

REPORT INFORMATION
  Report Type: 
  Country: None (occurrence: None)
  Receive Date: 20090226
  Receipt Date: 20090216
  Transmission Date: 20090719
  Serious: Yes (Hospitalization, Other)
  Sender: FDA-Public Use
  Company Number: 2009AP000611

PATIENT
  Age: 73 Year
  Sex: Male

DRUGS (3)
  1. PAROXETINE HCL [Suspect]
     Dosage: 20 MG QD;
  2. CLOPIDOGREL BISULFATE [Suspect]
     Dosage: 75 MG, QD;
  3. LORAZEPAM [Concomitant]

REACTIONS (4)
  - DRUG INTERACTION [None]
  - GASTRIC ULCER [None]
  - SYNCOPE [None]
  - UPPER GASTROINTESTINAL HAEMORRHAGE [None]
